FAERS Safety Report 4371635-X (Version None)
Quarter: 2004Q2

REPORT INFORMATION
  Report Type: 
  Country: None (occurrence: None)
  Receive Date: 20040601
  Receipt Date: 20040520
  Transmission Date: 20050107
  Serious: Yes (Other)
  Sender: FDA-Public Use
  Company Number: 2004034123

PATIENT
  Age: 34 Year
  Sex: Female
  Weight: 68.0396 kg

DRUGS (1)
  1. NEURONTIN [Suspect]
     Indication: NECK PAIN
     Dosage: 300 MG (300 MG, DAILY INTERVAL:  EVERY DAY), ORAL
     Route: 048
     Dates: start: 20030601

REACTIONS (11)
  - ABDOMINAL DISTENSION [None]
  - ABDOMINAL PAIN UPPER [None]
  - DRUG INEFFECTIVE [None]
  - EXOSTOSIS [None]
  - HYSTERECTOMY [None]
  - INFLAMMATION [None]
  - INSOMNIA [None]
  - NECK PAIN [None]
  - NERVE COMPRESSION [None]
  - OVARIAN CYST [None]
  - SWELLING [None]
